FAERS Safety Report 14735126 (Version 2)
Quarter: 2018Q2

REPORT INFORMATION
  Report Type: Spontaneous
  Country: JP (occurrence: JP)
  Receive Date: 20180409
  Receipt Date: 20180424
  Transmission Date: 20180711
  Serious: Yes (Hospitalization)
  Sender: FDA-Public Use
  Company Number: JP-MYLANLABS-2018M1022229

PATIENT
  Sex: Female
  Weight: 26.55 kg

DRUGS (6)
  1. CLARITHROMYCIN. [Suspect]
     Active Substance: CLARITHROMYCIN
     Indication: COUGH
  2. OZEX                               /01070602/ [Suspect]
     Active Substance: TOSUFLOXACIN TOSYLATE
     Indication: PNEUMONIA MYCOPLASMAL
     Dosage: UNK
     Route: 048
     Dates: start: 20160707, end: 20160708
  3. FLAVERIC [Concomitant]
     Active Substance: BENPROPERINE PHOSPHATE
     Indication: PNEUMONIA MYCOPLASMAL
     Dosage: UNK
     Route: 048
     Dates: start: 20160607, end: 20160608
  4. CLARITHROMYCIN. [Suspect]
     Active Substance: CLARITHROMYCIN
     Indication: PNEUMONIA MYCOPLASMAL
     Dosage: UNK
     Dates: start: 20160704
  5. CLARITHROMYCIN. [Suspect]
     Active Substance: CLARITHROMYCIN
     Indication: PYREXIA
  6. LORCAM                             /01449001/ [Concomitant]
     Indication: PNEUMONIA MYCOPLASMAL
     Dosage: UNK
     Route: 048
     Dates: start: 20160607, end: 20160708

REACTIONS (1)
  - Acute kidney injury [Recovering/Resolving]
